FAERS Safety Report 11264710 (Version 1)
Quarter: 2015Q3

REPORT INFORMATION
  Report Type: Spontaneous
  Country: US (occurrence: US)
  Receive Date: 20150713
  Receipt Date: 20150713
  Transmission Date: 20151125
  Serious: Yes (Other)
  Sender: FDA-Public Use
  Company Number: US-PFIZER INC-2015226033

PATIENT
  Age: 64 Year
  Sex: Female
  Weight: 62.59 kg

DRUGS (1)
  1. IBRANCE [Suspect]
     Active Substance: PALBOCICLIB
     Indication: BREAST CANCER FEMALE
     Dosage: 125 MG, D1-D21 Q 28 D
     Route: 048
     Dates: start: 20150605, end: 20150626

REACTIONS (1)
  - White blood cell count decreased [Unknown]
